FAERS Safety Report 19664767 (Version 2)
Quarter: 2022Q1

REPORT INFORMATION
  Report Type: Spontaneous
  Country: US (occurrence: US)
  Receive Date: 20210806
  Receipt Date: 20220304
  Transmission Date: 20220423
  Serious: No
  Sender: FDA-Public Use
  Company Number: US-PURDUE-USA-2021-0274187

PATIENT
  Age: 68 Year
  Sex: Female
  Weight: 108.84 kg

DRUGS (1)
  1. BUPRENORPHINE [Suspect]
     Active Substance: BUPRENORPHINE
     Indication: Analgesic therapy
     Dosage: 10 MCG/HR, WEEKLY
     Route: 062
     Dates: start: 20210701, end: 20210707

REACTIONS (8)
  - Balance disorder [Unknown]
  - Application site burn [Unknown]
  - Application site vesicles [Unknown]
  - Application site erythema [Unknown]
  - Dizziness [Unknown]
  - Application site pruritus [Unknown]
  - Application site swelling [Unknown]
  - Application site inflammation [Unknown]

NARRATIVE: CASE EVENT DATE: 20210703
